FAERS Safety Report 17975512 (Version 2)
Quarter: 2020Q3

REPORT INFORMATION
  Report Type: Spontaneous
  Country: EG (occurrence: EG)
  Receive Date: 20200702
  Receipt Date: 20200710
  Transmission Date: 20201103
  Serious: Yes (Hospitalization)
  Sender: FDA-Public Use
  Company Number: EG-NOVOPROD-736755

PATIENT
  Age: 864 Month
  Sex: Female
  Weight: 90 kg

DRUGS (9)
  1. CRESTOR [Concomitant]
     Active Substance: ROSUVASTATIN CALCIUM
     Indication: CARDIOMYOPATHY
     Dosage: 1 TAB/DAY
     Route: 048
  2. EXAMIDE [Concomitant]
     Indication: PRODUCT USED FOR UNKNOWN INDICATION
     Dosage: 1 TABLET/DAY, STARTED 5 DAYS AGO.
     Route: 048
  3. ACTRAPID [Suspect]
     Active Substance: INSULIN HUMAN
     Indication: DIABETES MELLITUS
     Dosage: 35 IU, QD (10?15?10)
     Route: 058
  4. MIXTARD 30 HM PENFILL [Suspect]
     Active Substance: INSULIN HUMAN
     Indication: DIABETES MELLITUS
     Dosage: 60 IU, QD (40?0?20)
     Route: 058
  5. LANTUS [Concomitant]
     Active Substance: INSULIN GLARGINE
     Indication: DIABETES MELLITUS
     Dosage: 20 IU, QD (AT NIGHT)
     Route: 058
  6. ASPOCID [Concomitant]
     Active Substance: ASPIRIN
     Indication: ANTICOAGULANT THERAPY
     Dosage: 2 TABLETS /DAY, STARTED 5 DAYS AGO
     Route: 048
  7. FEBURIC [Concomitant]
     Active Substance: FEBUXOSTAT
     Indication: PRODUCT USED FOR UNKNOWN INDICATION
     Dosage: 0.5 TABLET/ DAY, STARTED 5 DAYS AGO
     Route: 065
  8. NEVILOB [Concomitant]
     Indication: PRODUCT USED FOR UNKNOWN INDICATION
     Dosage: 2 TABLETS/DAY, STARTED 5 DAYS AGO,
     Route: 048
  9. CARDEPINE [NICARDIPINE HYDROCHLORIDE] [Concomitant]
     Indication: PRODUCT USED FOR UNKNOWN INDICATION
     Dosage: 1 TABLET/DAY, STARTED 5 DAYS AGO.
     Route: 048

REACTIONS (2)
  - Pulmonary oedema [Unknown]
  - Hyperglycaemia [Recovered/Resolved]
